FAERS Safety Report 25081161 (Version 1)
Quarter: 2025Q1

REPORT INFORMATION
  Report Type: Other
  Country: SG (occurrence: SG)
  Receive Date: 20250315
  Receipt Date: 20250315
  Transmission Date: 20250408
  Serious: Yes (Other)
  Sender: VISTAPHARM
  Company Number: SG-Vista Pharmaceuticals Inc.-2172975

PATIENT
  Age: 8 Decade
  Sex: Female

DRUGS (5)
  1. SULFAMETHOXAZOLE\TRIMETHOPRIM [Suspect]
     Active Substance: SULFAMETHOXAZOLE\TRIMETHOPRIM
     Indication: Osteomyelitis
  2. LOSARTAN [Suspect]
     Active Substance: LOSARTAN
  3. SITAGLIPTIN [Concomitant]
     Active Substance: SITAGLIPTIN
  4. METFORMIN [Concomitant]
     Active Substance: METFORMIN HYDROCHLORIDE
  5. GLICLAZIDE [Concomitant]
     Active Substance: GLICLAZIDE

REACTIONS (3)
  - Renal tubular acidosis [Recovered/Resolved]
  - Product use in unapproved indication [Unknown]
  - Hyperkalaemia [Recovered/Resolved]
